FAERS Safety Report 14169857 (Version 1)
Quarter: 2017Q4

REPORT INFORMATION
  Report Type: Spontaneous
  Country: US (occurrence: None)
  Receive Date: 20171107
  Receipt Date: 20171107
  Transmission Date: 20180321
  Serious: No
  Sender: FDA-Public Use
  Company Number: None

PATIENT
  Age: 77 Year
  Sex: Female

DRUGS (1)
  1. REVLIMID [Suspect]
     Active Substance: LENALIDOMIDE
     Indication: PLASMA CELL MYELOMA
     Route: 048
     Dates: start: 20140904, end: 20150922

REACTIONS (4)
  - Therapy cessation [None]
  - Cytopenia [None]
  - Pancytopenia [None]
  - Diarrhoea [None]

NARRATIVE: CASE EVENT DATE: 20150922
